FAERS Safety Report 17138027 (Version 1)
Quarter: 2019Q4

REPORT INFORMATION
  Report Type: Spontaneous
  Country: US (occurrence: US)
  Receive Date: 20191211
  Receipt Date: 20191211
  Transmission Date: 20200122
  Serious: No
  Sender: FDA-Public Use
  Company Number: US-JNJFOC-20191047231

PATIENT
  Age: 79 Year
  Sex: Female

DRUGS (1)
  1. TYLENOL SINUS PLUS HEADACHE DAY [Suspect]
     Active Substance: ACETAMINOPHEN\PHENYLEPHRINE HYDROCHLORIDE
     Indication: SINUS HEADACHE
     Dosage: EVERY 4 HOURS TAKEN ONLY ONCE
     Route: 048
     Dates: start: 20191010, end: 20191010

REACTIONS (3)
  - Dyspepsia [Recovered/Resolved]
  - Product taste abnormal [Unknown]
  - Throat irritation [Recovered/Resolved]

NARRATIVE: CASE EVENT DATE: 20191010
